FAERS Safety Report 19024204 (Version 1)
Quarter: 2021Q1

REPORT INFORMATION
  Report Type: Spontaneous
  Country: CA (occurrence: CA)
  Receive Date: 20210317
  Receipt Date: 20210317
  Transmission Date: 20210420
  Serious: Yes (Other)
  Sender: FDA-Public Use
  Company Number: CA-JNJFOC-20210329188

PATIENT
  Age: 33 Year
  Sex: Female
  Weight: 59 kg

DRUGS (4)
  1. AZATHIOPRINE SODIUM. [Concomitant]
     Active Substance: AZATHIOPRINE SODIUM
     Indication: COLITIS ULCERATIVE
     Route: 048
  2. INFLIXIMAB, RECOMBINANT [Suspect]
     Active Substance: INFLIXIMAB
     Indication: COLITIS ULCERATIVE
     Route: 042
  3. MEZAVANT [Concomitant]
     Active Substance: MESALAMINE
     Indication: COLITIS ULCERATIVE
     Dosage: DELAYED AND EXTENDED RELEASE
  4. AZATHIOPRINE SODIUM. [Concomitant]
     Active Substance: AZATHIOPRINE SODIUM
     Indication: IMMUNOSUPPRESSION

REACTIONS (2)
  - Off label use [Unknown]
  - Condition aggravated [Unknown]
